FAERS Safety Report 15664253 (Version 1)
Quarter: 2018Q4

REPORT INFORMATION
  Report Type: Report from Study
  Country: None (occurrence: US)
  Receive Date: 20181128
  Receipt Date: 20181128
  Transmission Date: 20190205
  Serious: Yes (Other)
  Sender: FDA-Public Use
  Company Number: US-ABBVIE-18K-163-2566081-00

PATIENT
  Sex: Female

DRUGS (1)
  1. HUMIRA [Suspect]
     Active Substance: ADALIMUMAB
     Indication: CROHN^S DISEASE
     Route: 058

REACTIONS (4)
  - Increased bronchial secretion [Recovered/Resolved]
  - Pulmonary congestion [Recovered/Resolved]
  - Upper respiratory tract infection [Recovered/Resolved]
  - Systemic lupus erythematosus [Recovered/Resolved]
